FAERS Safety Report 9179726 (Version 1)
Quarter: 2012Q4

REPORT INFORMATION
  Report Type: Report from Study
  Country: US (occurrence: US)
  Receive Date: 20121029
  Receipt Date: 20121029
  Transmission Date: 20130627
  Serious: Yes (Other)
  Sender: FDA-Public Use
  Company Number: US-JNJFOC-20121013371

PATIENT
  Sex: Female

DRUGS (3)
  1. STELARA [Suspect]
     Indication: PSORIASIS
     Route: 058
     Dates: start: 20120403
  2. STELARA [Suspect]
     Indication: PSORIASIS
     Route: 058
     Dates: start: 201201
  3. ATTENTION DEFICIT DISORDER MEDICATION [Concomitant]

REACTIONS (3)
  - Depression [Unknown]
  - Attention deficit/hyperactivity disorder [Unknown]
  - Drug dose omission [Unknown]
